FAERS Safety Report 9381386 (Version 1)
Quarter: 2013Q3

REPORT INFORMATION
  Report Type: Spontaneous
  Country: PL (occurrence: PL)
  Receive Date: 20130703
  Receipt Date: 20130703
  Transmission Date: 20140515
  Serious: Yes (Hospitalization, Other)
  Sender: FDA-Public Use
  Company Number: PHHY2013PL067724

PATIENT
  Age: 65 Year
  Sex: Male
  Weight: 59 kg

DRUGS (4)
  1. TASIGNA [Suspect]
     Indication: CHRONIC MYELOID LEUKAEMIA
     Dosage: 2X400 MG/DAY
     Route: 048
     Dates: start: 20110505, end: 20130104
  2. TASIGNA [Suspect]
     Dosage: UNK
     Route: 048
  3. KALDYUM [Concomitant]
     Indication: MUSCLE SPASMS
     Dosage: 1X1 CAPSULE
     Route: 048
     Dates: start: 20080331
  4. MAGNEZIN [Suspect]
     Indication: MUSCLE SPASMS
     Dosage: 3X1 TABLET
     Route: 048
     Dates: start: 20080331

REACTIONS (1)
  - Myocardial infarction [Recovered/Resolved with Sequelae]
